FAERS Safety Report 13801209 (Version 1)
Quarter: 2017Q3

REPORT INFORMATION
  Report Type: Spontaneous
  Country: DE (occurrence: DE)
  Receive Date: 20170727
  Receipt Date: 20170727
  Transmission Date: 20171127
  Serious: Yes (Other)
  Sender: FDA-Public Use
  Company Number: DE-009507513-1707DEU011062

PATIENT
  Age: 54 Year
  Sex: Male

DRUGS (2)
  1. PEMBROLIZUMAB. [Suspect]
     Active Substance: PEMBROLIZUMAB
     Indication: METASTATIC MALIGNANT MELANOMA
     Dosage: FIRST EXPOSURE
  2. PEMBROLIZUMAB. [Suspect]
     Active Substance: PEMBROLIZUMAB
     Dosage: SECOND EXPOSURE

REACTIONS (6)
  - Abdominal pain [Unknown]
  - Pancreatitis [Unknown]
  - Leukopenia [Unknown]
  - Epistaxis [Unknown]
  - Hypothyroidism [Unknown]
  - Eczema [Unknown]
